FAERS Safety Report 13294368 (Version 1)
Quarter: 2017Q1

REPORT INFORMATION
  Report Type: Spontaneous
  Country: US (occurrence: US)
  Receive Date: 20170303
  Receipt Date: 20170303
  Transmission Date: 20170428
  Serious: Yes (Hospitalization)
  Sender: FDA-Public Use
  Company Number: US-VIFOR (INTERNATIONAL) INC.-VIT-2017-00337

PATIENT
  Age: 81 Year
  Sex: Female

DRUGS (19)
  1. ACETYLSALICYLIC ACID [Concomitant]
     Active Substance: ASPIRIN
  2. NORVASC [Concomitant]
     Active Substance: AMLODIPINE BESYLATE
  3. CITALOPRAM HYDROBROMIDE. [Concomitant]
     Active Substance: CITALOPRAM HYDROBROMIDE
  4. METOPROLOL TARTRATE. [Concomitant]
     Active Substance: METOPROLOL TARTRATE
  5. ACTOS [Concomitant]
     Active Substance: PIOGLITAZONE HYDROCHLORIDE
  6. VELTASSA [Suspect]
     Active Substance: PATIROMER
     Indication: HYPERKALAEMIA
     Route: 048
     Dates: start: 20160802
  7. CARAFATE [Concomitant]
     Active Substance: SUCRALFATE
  8. CLONAZEPAM. [Concomitant]
     Active Substance: CLONAZEPAM
  9. LISINOPRIL. [Concomitant]
     Active Substance: LISINOPRIL
  10. FERROUS GLUCONATE [Concomitant]
     Active Substance: FERROUS GLUCONATE
  11. SUCRALFATE. [Concomitant]
     Active Substance: SUCRALFATE
  12. ZOCOR [Concomitant]
     Active Substance: SIMVASTATIN
  13. AMARYL [Concomitant]
     Active Substance: GLIMEPIRIDE
  14. IRON [Concomitant]
     Active Substance: IRON
  15. LIPITOR [Concomitant]
     Active Substance: ATORVASTATIN CALCIUM
  16. ERGOCALCIFEROL/ASCORBIC ACID/CALCIUM PANTOTHENATE/NICOTINAMIDE/PYRIDOXINE HYDROCHLORIDE/RETINOL/RIBO [Concomitant]
  17. NEXIUM [Concomitant]
     Active Substance: ESOMEPRAZOLE MAGNESIUM
  18. NORTRIPTYLINE HYDROCHLORIDE. [Concomitant]
     Active Substance: NORTRIPTYLINE HYDROCHLORIDE
  19. HYDROCHLOROTHIAZIDE. [Concomitant]
     Active Substance: HYDROCHLOROTHIAZIDE

REACTIONS (2)
  - Blood potassium increased [Unknown]
  - Influenza [Unknown]

NARRATIVE: CASE EVENT DATE: 20170101
